FAERS Safety Report 9001035 (Version 1)
Quarter: 2013Q1

REPORT INFORMATION
  Report Type: Spontaneous
  Country: US (occurrence: US)
  Receive Date: 20130107
  Receipt Date: 20130107
  Transmission Date: 20140127
  Serious: No
  Sender: FDA-Public Use
  Company Number: US-PFIZER INC-2013002437

PATIENT
  Age: 76 Year
  Sex: Female

DRUGS (2)
  1. SUTENT [Suspect]
     Indication: GASTROINTESTINAL STROMAL TUMOUR
     Dosage: UNK
  2. SUTENT [Suspect]
     Dosage: 25 MG, 2X/DAY
     Dates: start: 20121228

REACTIONS (2)
  - Neck mass [Unknown]
  - Pain [Unknown]
